FAERS Safety Report 18067598 (Version 1)
Quarter: 2020Q3

REPORT INFORMATION
  Report Type: Spontaneous
  Country: AU (occurrence: AU)
  Receive Date: 20200724
  Receipt Date: 20200724
  Transmission Date: 20201103
  Serious: Yes (Other)
  Sender: FDA-Public Use
  Company Number: NVSC2020AU205958

PATIENT
  Age: 33 Year
  Sex: Male

DRUGS (2)
  1. DEFERASIROX. [Suspect]
     Active Substance: DEFERASIROX
     Indication: THALASSAEMIA BETA
     Dosage: 28 MG/KG, QD
     Route: 065
  2. HYDROCHLOROTHIAZIDE. [Suspect]
     Active Substance: HYDROCHLOROTHIAZIDE
     Indication: THALASSAEMIA BETA
     Dosage: 25 MG, QD
     Route: 065

REACTIONS (2)
  - Fanconi syndrome acquired [Unknown]
  - Drug-induced liver injury [Unknown]
